FAERS Safety Report 9158257 (Version 1)
Quarter: 2013Q1

REPORT INFORMATION
  Report Type: Spontaneous
  Country: DK (occurrence: None)
  Receive Date: 20130211
  Receipt Date: 20130211
  Transmission Date: 20140127
  Serious: Yes (Other)
  Sender: FDA-Public Use
  Company Number: 2013MA000895

PATIENT
  Age: 55 Year
  Sex: Female

DRUGS (4)
  1. FEVERALL [Suspect]
     Dosage: 1000 MG; 1X; PO
     Route: 048
     Dates: start: 20120922, end: 20120922
  2. DEPO MEDROL [Suspect]
     Dosage: 40 MG; 1X; ISY
     Dates: start: 20120922, end: 20120922
  3. NORMOPRESS [Concomitant]
  4. TAVACOR [Concomitant]

REACTIONS (2)
  - Rash papular [None]
  - Urticaria [None]
